FAERS Safety Report 14668206 (Version 2)
Quarter: 2018Q2

REPORT INFORMATION
  Report Type: Spontaneous
  Country: US (occurrence: US)
  Receive Date: 20180322
  Receipt Date: 20180508
  Transmission Date: 20180711
  Serious: No
  Sender: FDA-Public Use
  Company Number: US-CELLTRION INC.-2017US017529

PATIENT

DRUGS (4)
  1. INFLECTRA [Suspect]
     Active Substance: INFLIXIMAB-DYYB
     Indication: PSORIATIC ARTHROPATHY
     Dosage: 5 DF;(5 VIALS EVERY 2, 4,6, AND EVERY 8 WEEKS)
     Route: 065
  2. INFLECTRA [Suspect]
     Active Substance: INFLIXIMAB-DYYB
     Dosage: 5 DF( 5 VIALS AT WEEK 0, 2, 6 AND THAN EVERY 8 WEEKS)
     Route: 065
     Dates: start: 20180327, end: 20180327
  3. INFLECTRA [Suspect]
     Active Substance: INFLIXIMAB-DYYB
     Dosage: 5 DF;(5 VIALS EVERY 2, 4,6, AND EVERY 8 WEEKS
     Route: 065
     Dates: start: 20180227, end: 20180227
  4. INFLECTRA [Suspect]
     Active Substance: INFLIXIMAB-DYYB
     Dosage: 5 DF;(5 VIALS EVERY 2, 4,6, AND EVERY 8 WEEKS
     Route: 065
     Dates: start: 20180206, end: 20180206

REACTIONS (2)
  - Inappropriate schedule of drug administration [Unknown]
  - Drug prescribing error [Unknown]
